FAERS Safety Report 5141157-7 (Version None)
Quarter: 2006Q4

REPORT INFORMATION
  Report Type: 
  Country: None (occurrence: None)
  Receive Date: 20061026
  Receipt Date: 20061012
  Transmission Date: 20070319
  Serious: Yes (Hospitalization)
  Sender: FDA-Public Use
  Company Number: 2006JP003486

PATIENT
  Age: 74 Year
  Sex: Male

DRUGS (3)
  1. VESICARE [Suspect]
     Indication: HYPERTONIC BLADDER
     Dosage: SEE IMAGE
     Route: 048
     Dates: start: 20060802, end: 20060913
  2. VESICARE [Suspect]
     Indication: HYPERTONIC BLADDER
     Dosage: SEE IMAGE
     Route: 048
     Dates: start: 20060914, end: 20060915
  3. GOSHAJINKIGAN (HERBAL EXTRACT NOS) [Concomitant]

REACTIONS (4)
  - DRUG EFFECT DECREASED [None]
  - FAECES HARD [None]
  - ILEUS PARALYTIC [None]
  - INTESTINAL OBSTRUCTION [None]
